FAERS Safety Report 4512206-1 (Version None)
Quarter: 2004Q4

REPORT INFORMATION
  Report Type: 
  Country: None (occurrence: None)
  Receive Date: 20041123
  Receipt Date: 20041108
  Transmission Date: 20050328
  Serious: Yes (Death, Hospitalization, Other)
  Sender: FDA-Public Use
  Company Number: 2004EN000077

PATIENT
  Age: 61 Year
  Sex: Female

DRUGS (5)
  1. AMPHOTERICIN B [Suspect]
     Indication: ASPERGILLOSIS
     Dosage: 30 GM; QD; IV; MG/KG; QD; IV; MG/KG; IV
     Route: 042
  2. PREDNISOLONE [Concomitant]
  3. ANTIBIOTICS [Concomitant]
  4. GANCICLOVIR [Concomitant]
  5. FRESH FROZEN PLASMA [Concomitant]

REACTIONS (16)
  - ABSCESS [None]
  - ASPERGILLOSIS [None]
  - CARDIAC VALVE VEGETATION [None]
  - DRUG INEFFECTIVE [None]
  - DYSPNOEA [None]
  - EMBOLIC CEREBRAL INFARCTION [None]
  - ENDOCARDITIS [None]
  - MITRAL VALVE INCOMPETENCE [None]
  - PAPILLARY MUSCLE RUPTURE [None]
  - POLYNEUROPATHY [None]
  - PSEUDOMONAS INFECTION [None]
  - PYREXIA [None]
  - RENAL INFARCT [None]
  - SEPTIC SHOCK [None]
  - SPLENIC INFARCTION [None]
  - VENTRICULAR HYPOKINESIA [None]
